FAERS Safety Report 11488875 (Version 1)
Quarter: 2015Q3

REPORT INFORMATION
  Report Type: Spontaneous
  Country: US (occurrence: US)
  Receive Date: 20150910
  Receipt Date: 20150910
  Transmission Date: 20151125
  Serious: Yes (Other)
  Sender: FDA-Public Use
  Company Number: US-ROCHE-1570247

PATIENT
  Age: 7 Year
  Sex: Male
  Weight: 27.5 kg

DRUGS (2)
  1. REBETOL [Suspect]
     Active Substance: RIBAVIRIN
     Indication: HEPATITIS C
     Dosage: 40 MG/ML
     Route: 048
     Dates: start: 20140616
  2. PEGASYS [Suspect]
     Active Substance: PEGINTERFERON ALFA-2A
     Indication: HEPATITIS C
     Route: 030
     Dates: start: 20150123

REACTIONS (4)
  - Injection site extravasation [Unknown]
  - Drug ineffective [Unknown]
  - Viral load increased [Unknown]
  - Syringe issue [Unknown]

NARRATIVE: CASE EVENT DATE: 20150415
